FAERS Safety Report 9000875 (Version 2)
Quarter: 2013Q4

REPORT INFORMATION
  Report Type: Spontaneous
  Country: JP (occurrence: None)
  Receive Date: 20121226
  Receipt Date: 20131108
  Transmission Date: 20140711
  Serious: Yes (Death)
  Sender: FDA-Public Use
  Company Number: JP-010456

PATIENT
  Age: 73 Year
  Sex: Male
  Weight: 67.8 kg

DRUGS (11)
  1. DEGARELIX [Suspect]
     Indication: PROSTATE CANCER
     Route: 058
     Dates: start: 20121112, end: 20121112
  2. WARFARIN (WARFARIN) [Concomitant]
     Indication: CARDIAC DISORDER
     Route: 048
  3. PROSEXOL [Concomitant]
     Indication: PRODUCT USED FOR UNKNOWN INDICATION
  4. LASIX [Concomitant]
  5. ALDACTONE [Concomitant]
  6. LANIRAPID [Concomitant]
  7. HOCHUEKKITO [Concomitant]
  8. MAGLAX [Concomitant]
  9. ASPARA POTASSIUM [Concomitant]
  10. GLYCYRON [Concomitant]
  11. LEUPLIN [Concomitant]

REACTIONS (1)
  - Death [None]
